FAERS Safety Report 10464662 (Version 1)
Quarter: 2014Q3

REPORT INFORMATION
  Report Type: Report from Study
  Country: CA (occurrence: CA)
  Receive Date: 20140919
  Receipt Date: 20140919
  Transmission Date: 20150326
  Serious: Yes (Hospitalization)
  Sender: FDA-Public Use
  Company Number: CA-ABBVIE-14K-028-1284570-00

PATIENT
  Sex: Male

DRUGS (2)
  1. HUMIRA [Suspect]
     Active Substance: ADALIMUMAB
     Indication: PRODUCT USED FOR UNKNOWN INDICATION
     Dosage: TWO PENS A WEEK
     Route: 058
     Dates: start: 20140225
  2. HUMIRA [Suspect]
     Active Substance: ADALIMUMAB
     Dosage: ONE PEN A WEEKLY
     Route: 058
     Dates: start: 2014

REACTIONS (8)
  - Pyrexia [Not Recovered/Not Resolved]
  - Constipation [Unknown]
  - Condition aggravated [Not Recovered/Not Resolved]
  - Defaecation urgency [Unknown]
  - Blood pressure fluctuation [Not Recovered/Not Resolved]
  - Hypersomnia [Unknown]
  - Wound [Not Recovered/Not Resolved]
  - Fatigue [Not Recovered/Not Resolved]

NARRATIVE: CASE EVENT DATE: 2014
